FAERS Safety Report 7401048-5 (Version None)
Quarter: 2011Q2

REPORT INFORMATION
  Report Type: 
  Country: None (occurrence: None)
  Receive Date: 20110407
  Receipt Date: 20110324
  Transmission Date: 20111010
  Serious: Yes (Hospitalization)
  Sender: FDA-Public Use
  Company Number: JP-AMGEN-JPNSP2011017521

PATIENT
  Age: 68 Year
  Sex: Male

DRUGS (10)
  1. OXAROL [Concomitant]
     Dosage: 2.5 A?G, UNK
     Route: 042
  2. FOSRENOL [Concomitant]
     Dosage: UNK UNK, Q3WK
     Route: 048
     Dates: start: 20091209
  3. CALTAN [Concomitant]
     Dosage: 2 G, QD
     Route: 048
     Dates: start: 20090429
  4. ALESION [Concomitant]
     Dosage: 15 MG, QD
     Route: 048
     Dates: start: 20090801
  5. HALCION [Concomitant]
     Dosage: 20 MG, QD
     Route: 048
     Dates: start: 20090801
  6. CINACALCET HCL - KHK [Suspect]
     Indication: HYPERPARATHYROIDISM SECONDARY
     Dosage: 25 MG, UNK
     Route: 048
     Dates: start: 20090406
  7. NU-LOTAN [Concomitant]
     Dosage: 250 MG, TID
     Route: 048
     Dates: start: 20090814
  8. TAKEPRON [Concomitant]
     Dosage: 125 MG, QID
     Route: 048
  9. ASPIRIN [Concomitant]
     Dosage: 50 MG, 4 TIMES/WK
     Route: 048
  10. PURSENNID [Concomitant]
     Dosage: 100 MG, QD
     Route: 048

REACTIONS (2)
  - DIVERTICULITIS [None]
  - EOSINOPHILIA [None]
